FAERS Safety Report 7417425-2 (Version None)
Quarter: 2011Q2

REPORT INFORMATION
  Report Type: 
  Country: None (occurrence: None)
  Receive Date: 20110412
  Receipt Date: 20110412
  Transmission Date: 20111010
  Serious: Yes (Other)
  Sender: FDA-Public Use
  Company Number: None

PATIENT
  Sex: Female
  Weight: 48.5349 kg

DRUGS (1)
  1. CIPROFLOXACIN [Suspect]
     Indication: KIDNEY INFECTION
     Dosage: 1 TABLET TWICE DAILY
     Dates: start: 20110309, end: 20110316

REACTIONS (6)
  - PAIN IN EXTREMITY [None]
  - IMMOBILE [None]
  - MUSCULOSKELETAL STIFFNESS [None]
  - FATIGUE [None]
  - ASTHENIA [None]
  - ARTHRALGIA [None]
